FAERS Safety Report 6681929-0 (Version None)
Quarter: 2010Q2

REPORT INFORMATION
  Report Type: 
  Country: None (occurrence: None)
  Receive Date: 20100409
  Receipt Date: 20100329
  Transmission Date: 20101027
  Serious: Yes (Hospitalization)
  Sender: FDA-Public Use
  Company Number: 2010-0041

PATIENT
  Age: 58 Year
  Sex: Female

DRUGS (4)
  1. FARESTON [Suspect]
     Indication: BREAST CANCER
     Dosage: 120 MG, ORAL
     Route: 048
     Dates: start: 20080909, end: 20081220
  2. PACLITAXEL [Concomitant]
  3. EPIRUBICIN HYDROCHLORIDE [Concomitant]
  4. ZOLEDRONIC ACID HYDRATE [Concomitant]

REACTIONS (4)
  - CONDITION AGGRAVATED [None]
  - MALAISE [None]
  - MALIGNANT PLEURAL EFFUSION [None]
  - METASTASES TO LIVER [None]
